FAERS Safety Report 21145824 (Version 1)
Quarter: 2022Q3

REPORT INFORMATION
  Report Type: Spontaneous
  Country: US (occurrence: US)
  Receive Date: 20220729
  Receipt Date: 20220729
  Transmission Date: 20221026
  Serious: Yes (Other)
  Sender: FDA-Public Use
  Company Number: US-CIPLA LTD.-2022US04601

PATIENT
  Age: 34 Year
  Sex: Male

DRUGS (4)
  1. TESTOSTERONE [Suspect]
     Active Substance: TESTOSTERONE
     Indication: Muscle disorder
     Dosage: 500 MILLIGRAM, WEEKLY ONCE, 4 WEEKS ON 2 WEEKS OFF
     Route: 030
  2. TRENBOLONE [Suspect]
     Active Substance: TRENBOLONE
     Indication: Muscle disorder
     Dosage: 200 MILLIGRAM, WEEKLY ONCE, 4 WEEKS ON 2 WEEKS OFF
     Route: 030
  3. DECA-DURABOLIN [Suspect]
     Active Substance: NANDROLONE DECANOATE
     Indication: Muscle disorder
     Dosage: 200 MILLIGRAM, WEEKLY ONCE, 4 WEEKS ON 2 WEEKS OFF
     Route: 030
  4. ARGININE [Suspect]
     Active Substance: ARGININE
     Indication: Supplementation therapy
     Dosage: ABOVE 40 G, QD (HIGH DOSE)
     Route: 065

REACTIONS (1)
  - Ophthalmic herpes zoster [Recovering/Resolving]
